FAERS Safety Report 17195856 (Version 2)
Quarter: 2020Q1

REPORT INFORMATION
  Report Type: Spontaneous
  Country: US (occurrence: US)
  Receive Date: 20191224
  Receipt Date: 20200214
  Transmission Date: 20200409
  Serious: Yes (Hospitalization)
  Sender: FDA-Public Use
  Company Number: US-RECORDATI RARE DISEASES-2078146

PATIENT
  Age: 55 Year
  Sex: Female
  Weight: 79.38 kg

DRUGS (18)
  1. FAMOTIDINE. [Concomitant]
     Active Substance: FAMOTIDINE
  2. METFORMIN [Concomitant]
     Active Substance: METFORMIN HYDROCHLORIDE
  3. BENZOTROPINE [Concomitant]
     Active Substance: BENZTROPINE
  4. METOPROLOL SUCCINATE. [Concomitant]
     Active Substance: METOPROLOL SUCCINATE
  5. CYSTADANE [Suspect]
     Active Substance: BETAINE
     Indication: HOMOCYSTINURIA
     Dates: start: 20180409
  6. KLOR-CON [Concomitant]
     Active Substance: POTASSIUM CHLORIDE
  7. VITAMIN B [Concomitant]
     Active Substance: VITAMIN B
  8. SPIRONOLACTONE. [Concomitant]
     Active Substance: SPIRONOLACTONE
  9. RISPERIDONE. [Concomitant]
     Active Substance: RISPERIDONE
  10. WARFARIN [Concomitant]
     Active Substance: WARFARIN
  11. DIGOXIN. [Concomitant]
     Active Substance: DIGOXIN
  12. MAGNESIUM OXIDE. [Concomitant]
     Active Substance: MAGNESIUM OXIDE
  13. FOLIC ACID. [Concomitant]
     Active Substance: FOLIC ACID
  14. FUROSEMIDE. [Concomitant]
     Active Substance: FUROSEMIDE
  15. LISINOPRIL. [Concomitant]
     Active Substance: LISINOPRIL
  16. ATORVASTATIN [Concomitant]
     Active Substance: ATORVASTATIN
  17. MELATONIN [Concomitant]
     Active Substance: MELATONIN
  18. NOVOLOG [Concomitant]
     Active Substance: INSULIN ASPART

REACTIONS (7)
  - Off label use [Not Recovered/Not Resolved]
  - Product dose omission [Unknown]
  - Blood homocysteine increased [Unknown]
  - Dyspnoea [Recovered/Resolved]
  - Amnesia [Unknown]
  - Inappropriate schedule of product administration [Not Recovered/Not Resolved]
  - Dementia [Unknown]

NARRATIVE: CASE EVENT DATE: 20180409
